FAERS Safety Report 6910290-9 (Version None)
Quarter: 2010Q3

REPORT INFORMATION
  Report Type: 
  Country: None (occurrence: None)
  Receive Date: 20100806
  Receipt Date: 20100723
  Transmission Date: 20110219
  Serious: Yes (Death)
  Sender: FDA-Public Use
  Company Number: RO-RANBAXY-2010RR-36675

PATIENT
  Sex: Male

DRUGS (11)
  1. PRAVATOR 40 MG [Suspect]
     Indication: DYSLIPIDAEMIA
     Dosage: 40 MG, UNK
     Route: 048
     Dates: start: 20100310, end: 20100428
  2. ACTOVEGYN HYDROLYSED [Concomitant]
     Indication: CEREBROVASCULAR ACCIDENT
     Dosage: UNK
     Route: 048
     Dates: start: 20100303, end: 20100323
  3. PENTOXIFYLLINE [Concomitant]
     Indication: CEREBROVASCULAR ACCIDENT
     Dosage: 100 MG, BID
     Route: 042
     Dates: start: 20100303, end: 20100317
  4. MENOTAL [Concomitant]
     Indication: CEREBROVASCULAR ACCIDENT
     Dosage: 1 G, BID
     Route: 042
     Dates: start: 20100303, end: 20100317
  5. VITAMIN B1 100 MG [Concomitant]
     Indication: CEREBROVASCULAR ACCIDENT
     Dosage: 2 G, UNK
     Route: 042
     Dates: start: 20100303, end: 20100317
  6. VITAMIN B6 250 MG [Concomitant]
     Indication: CEREBROVASCULAR ACCIDENT
     Dosage: 1 G, UNK
     Route: 042
     Dates: start: 20100303, end: 20100317
  7. ASPENTER [Concomitant]
     Indication: CEREBROVASCULAR ACCIDENT
     Dosage: 75 MG, UNK
     Route: 048
  8. NEDINIT [Concomitant]
     Indication: CEREBROVASCULAR ACCIDENT
     Dosage: 20 MG, UNK
     Route: 048
  9. PREDUCTAL [Concomitant]
     Indication: CEREBROVASCULAR ACCIDENT
     Dosage: 35 MG, UNK
  10. GABARAN [Concomitant]
     Dosage: 400 MG, UNK
     Route: 048
  11. NOVORM [Concomitant]
     Dosage: 1 DF, UNK
     Route: 048

REACTIONS (1)
  - CYTOLYTIC HEPATITIS [None]
